FAERS Safety Report 6498288-9 (Version None)
Quarter: 2009Q4

REPORT INFORMATION
  Report Type: 
  Country: None (occurrence: None)
  Receive Date: 20091215
  Receipt Date: 20091201
  Transmission Date: 20100525
  Serious: Yes (Other)
  Sender: FDA-Public Use
  Company Number: JP-PFIZER INC-2009299560

PATIENT
  Age: 41 Year
  Sex: Male

DRUGS (4)
  1. ZOLOFT [Suspect]
     Indication: DEPRESSION
     Dosage: UNK
     Route: 048
     Dates: start: 20061226
  2. MYSLEE [Concomitant]
     Indication: INSOMNIA
     Dosage: UNK
     Route: 048
     Dates: start: 20061219, end: 20090806
  3. SENIRAN [Concomitant]
     Indication: ANXIETY DISORDER
     Route: 048
     Dates: start: 20061219, end: 20090806
  4. BROTIZOLAM [Concomitant]
     Indication: INSOMNIA
     Route: 048
     Dates: start: 20061219, end: 20090806

REACTIONS (16)
  - AGGRESSION [None]
  - ALCOHOL ABUSE [None]
  - ANGER [None]
  - ANXIETY [None]
  - CRIME [None]
  - DEPRESSION [None]
  - HYPERLIPIDAEMIA [None]
  - INSOMNIA [None]
  - IRRITABILITY [None]
  - MANIA [None]
  - PERSONALITY CHANGE [None]
  - PERSONALITY DISORDER [None]
  - STRESS [None]
  - SUICIDAL IDEATION [None]
  - VERBAL ABUSE [None]
  - WEIGHT INCREASED [None]
